FAERS Safety Report 24745403 (Version 1)
Quarter: 2024Q4

REPORT INFORMATION
  Report Type: Spontaneous
  Country: TN (occurrence: None)
  Receive Date: 20241217
  Receipt Date: 20241217
  Transmission Date: 20250114
  Serious: Yes (Other)
  Sender: ENCUBE ETHICALS
  Company Number: TN-Encube-001446

PATIENT

DRUGS (3)
  1. TRIAMCINOLONE ACETONIDE [Suspect]
     Active Substance: TRIAMCINOLONE ACETONIDE
     Indication: Product used for unknown indication
     Dosage: INJECTION
  2. POVIDONE-IODINE [Concomitant]
     Active Substance: POVIDONE-IODINE
     Indication: Infection prophylaxis
  3. BENOXINATE [Concomitant]
     Active Substance: BENOXINATE
     Indication: Local anaesthesia

REACTIONS (2)
  - Non-infectious endophthalmitis [Recovered/Resolved]
  - Off label use [Unknown]
